FAERS Safety Report 18312372 (Version 2)
Quarter: 2021Q1

REPORT INFORMATION
  Report Type: Report from Study
  Country: GB (occurrence: GB)
  Receive Date: 20200925
  Receipt Date: 20210205
  Transmission Date: 20210419
  Serious: Yes (Other)
  Sender: FDA-Public Use
  Company Number: GB-PFIZER INC-2020350399

PATIENT
  Age: 39 Year
  Sex: Male
  Weight: 80.9 kg

DRUGS (5)
  1. TENOFOVIR [Concomitant]
     Active Substance: TENOFOVIR
     Indication: HEPATITIS B
     Dosage: 245 MG, ONGOING
     Route: 048
     Dates: start: 20200330
  2. MORPHINE SULPHATE [Concomitant]
     Active Substance: MORPHINE SULFATE
     Indication: PAIN
     Dosage: 5 MG, FREQ:4 H;AS REQUIRED 4 HOURLY, ONGOING
     Route: 048
     Dates: start: 20200505
  3. COCODAMOL [Concomitant]
     Active Substance: ACETAMINOPHEN\CODEINE PHOSPHATE
     Indication: PAIN
     Dosage: 1?2 TABLETS AS REQUIRED EVERY 6 HOURS
     Route: 048
     Dates: start: 20200313
  4. BEVACIZUMAB. [Suspect]
     Active Substance: BEVACIZUMAB
     Indication: HEPATOCELLULAR CARCINOMA
     Dosage: 15 MG/KG, EVERY 3 WEEKS, (DAY 1, 3? WEEKLY)
     Route: 042
     Dates: start: 20200805
  5. ATEZOLIZUMAB. [Suspect]
     Active Substance: ATEZOLIZUMAB
     Indication: HEPATOCELLULAR CARCINOMA
     Dosage: 1200 MG, EVERY 3 WEEKS, (DAY 1, 3 WEEKLY)
     Route: 042
     Dates: start: 20200805

REACTIONS (8)
  - Dizziness [Not Recovered/Not Resolved]
  - Oropharyngeal candidiasis [Not Recovered/Not Resolved]
  - Fatigue [Not Recovered/Not Resolved]
  - Headache [Not Recovered/Not Resolved]
  - Diarrhoea [Recovered/Resolved]
  - Mouth ulceration [Recovered/Resolved]
  - Hypertension [Not Recovered/Not Resolved]
  - Haemoglobin increased [Not Recovered/Not Resolved]

NARRATIVE: CASE EVENT DATE: 20200818
